FAERS Safety Report 10452406 (Version 1)
Quarter: 2014Q3

REPORT INFORMATION
  Report Type: Spontaneous
  Country: GB (occurrence: GB)
  Receive Date: 20140915
  Receipt Date: 20140915
  Transmission Date: 20150326
  Serious: Yes (Hospitalization)
  Sender: FDA-Public Use
  Company Number: GB-JNJFOC-20140903039

PATIENT
  Age: 48 Year
  Sex: Female
  Weight: 120.6 kg

DRUGS (1)
  1. OXYBUTYNIN HYDROCHLORIDE [Suspect]
     Active Substance: OXYBUTYNIN CHLORIDE
     Indication: HYPERHIDROSIS
     Route: 048
     Dates: start: 2012, end: 20140716

REACTIONS (5)
  - Off label use [Unknown]
  - Oxygen saturation abnormal [Unknown]
  - Pyrexia [Unknown]
  - Tachycardia [Unknown]
  - Constipation [Recovered/Resolved]

NARRATIVE: CASE EVENT DATE: 20140716
